FAERS Safety Report 22243717 (Version 1)
Quarter: 2023Q2

REPORT INFORMATION
  Report Type: Spontaneous
  Country: US (occurrence: None)
  Receive Date: 20230424
  Receipt Date: 20230424
  Transmission Date: 20230721
  Serious: No
  Sender: FDA-Public Use
  Company Number: 2023A080945

PATIENT
  Sex: Female
  Weight: 43.1 kg

DRUGS (2)
  1. FARXIGA [Suspect]
     Active Substance: DAPAGLIFLOZIN PROPANEDIOL
     Indication: Hypertension
     Route: 048
     Dates: start: 2022
  2. FARXIGA [Suspect]
     Active Substance: DAPAGLIFLOZIN PROPANEDIOL
     Indication: Hypertension
     Route: 048
     Dates: start: 2022

REACTIONS (8)
  - Weight decreased [Unknown]
  - Illness [Unknown]
  - Generalised oedema [Unknown]
  - Abdominal pain [Unknown]
  - Visual impairment [Unknown]
  - Nausea [Unknown]
  - Drug ineffective [Unknown]
  - Product use issue [Unknown]
